FAERS Safety Report 12133561 (Version 1)
Quarter: 2016Q1

REPORT INFORMATION
  Report Type: Spontaneous
  Country: GB (occurrence: GB)
  Receive Date: 20160301
  Receipt Date: 20160301
  Transmission Date: 20160526
  Serious: Yes (Hospitalization)
  Sender: FDA-Public Use
  Company Number: GB-009507513-1602GBR010690

PATIENT
  Sex: Female

DRUGS (3)
  1. REBETOL [Suspect]
     Active Substance: RIBAVIRIN
     Dosage: UNK, HS
     Route: 048
  2. DAKLINZA [Suspect]
     Active Substance: DACLATASVIR
  3. SOVALDI [Suspect]
     Active Substance: SOFOSBUVIR
     Route: 048

REACTIONS (2)
  - Pneumonia [Unknown]
  - Lower respiratory tract infection [Unknown]
